FAERS Safety Report 17364738 (Version 1)
Quarter: 2020Q1

REPORT INFORMATION
  Report Type: Report from Study
  Country: PL (occurrence: PL)
  Receive Date: 20200204
  Receipt Date: 20200204
  Transmission Date: 20200409
  Serious: Yes (Hospitalization, Other)
  Sender: FDA-Public Use
  Company Number: PL-APNAR-000042

PATIENT
  Age: 69 Year
  Sex: Female

DRUGS (4)
  1. FLUOXETINE [Suspect]
     Active Substance: FLUOXETINE HYDROCHLORIDE
     Indication: ANTIDEPRESSANT THERAPY
  2. LERCANIDIPINE [Interacting]
     Active Substance: LERCANIDIPINE
     Indication: HYPERTENSION
  3. DIOSMIN [Concomitant]
     Active Substance: DIOSMIN
  4. INDAPAMIDE. [Concomitant]
     Active Substance: INDAPAMIDE

REACTIONS (3)
  - Drug interaction [Unknown]
  - Drug level increased [Unknown]
  - Hypotension [Unknown]
